FAERS Safety Report 10531608 (Version 1)
Quarter: 2014Q4

REPORT INFORMATION
  Report Type: Spontaneous
  Country: GH (occurrence: GH)
  Receive Date: 20141021
  Receipt Date: 20141021
  Transmission Date: 20150529
  Serious: Yes (Hospitalization)
  Sender: FDA-Public Use
  Company Number: PHHY2014GH136483

PATIENT
  Sex: Male

DRUGS (1)
  1. COARTEM [Suspect]
     Active Substance: ARTEMETHER\LUMEFANTRINE
     Indication: MALARIA
     Dosage: 1 DF, BID (80/480 MG)  (TWICE DAILY)
     Route: 048
     Dates: start: 201408, end: 201408

REACTIONS (1)
  - Mumps [Recovered/Resolved]

NARRATIVE: CASE EVENT DATE: 201408
